FAERS Safety Report 13530071 (Version 1)
Quarter: 2017Q2

REPORT INFORMATION
  Report Type: Spontaneous
  Country: US (occurrence: US)
  Receive Date: 20170509
  Receipt Date: 20170509
  Transmission Date: 20170830
  Serious: No
  Sender: FDA-Public Use
  Company Number: US-UCBSA-2016015980

PATIENT
  Age: 66 Year
  Sex: Female
  Weight: 52.15 kg

DRUGS (11)
  1. GABAPENTIN. [Concomitant]
     Active Substance: GABAPENTIN
     Indication: NEURALGIA
     Dosage: 300 MG, 3X/DAY (TID), BEEN ON FOR SEVERAL YEARS
  2. CARBIDOPA/LEVODOPA [Concomitant]
     Active Substance: CARBIDOPA\LEVODOPA
     Indication: PRODUCT USED FOR UNKNOWN INDICATION
  3. NEUPRO [Suspect]
     Active Substance: ROTIGOTINE
     Indication: PARKINSON^S DISEASE
     Dosage: 2 MG, ONCE DAILY (QD)
     Dates: start: 20160406
  4. BUTALBITAL [Concomitant]
     Active Substance: BUTALBITAL
     Indication: NECK PAIN
     Dosage: UNK, AS NEEDED (PRN), BEEN ON SEVERAL YEARS
  5. AZILECT [Concomitant]
     Active Substance: RASAGILINE MESYLATE
     Indication: PARKINSON^S DISEASE
     Dosage: 1 MG, ONCE DAILY (QD), BEEN ON SINCE 1 - 2 YEARS
  6. ATIVAN [Concomitant]
     Active Substance: LORAZEPAM
     Indication: TREMOR
  7. AMBIEN CR [Concomitant]
     Active Substance: ZOLPIDEM TARTRATE
     Indication: INSOMNIA
     Dosage: 12.5 MG, ONCE DAILY (QD), BEEN ON SEVERAL YEARS
  8. ATIVAN [Concomitant]
     Active Substance: LORAZEPAM
     Indication: ANXIETY
     Dosage: 1 MG, 3X/DAY (TID), BEEN ON SEVERAL YEARS
  9. ULTRAM [Concomitant]
     Active Substance: TRAMADOL HYDROCHLORIDE
     Indication: PAIN
     Dosage: 50 MG, AS NEEDED (PRN), BEEN ON SEVERAL YEARS
  10. ATIVAN [Concomitant]
     Active Substance: LORAZEPAM
     Indication: INSOMNIA
  11. BUTALBITAL [Concomitant]
     Active Substance: BUTALBITAL
     Indication: HEADACHE

REACTIONS (5)
  - Dyskinesia [Recovered/Resolved]
  - Localised infection [Recovered/Resolved]
  - Hyperhidrosis [Recovered/Resolved]
  - Urinary tract infection [Not Recovered/Not Resolved]
  - Product adhesion issue [Unknown]

NARRATIVE: CASE EVENT DATE: 201604
